FAERS Safety Report 6061488-6 (Version None)
Quarter: 2009Q1

REPORT INFORMATION
  Report Type: 
  Country: None (occurrence: None)
  Receive Date: 20090202
  Receipt Date: 20090121
  Transmission Date: 20090719
  Serious: Yes (Death)
  Sender: FDA-Public Use
  Company Number: FR-WYE-H07941509

PATIENT
  Sex: Male

DRUGS (10)
  1. CORDARONE [Suspect]
     Route: 048
     Dates: end: 20080825
  2. AVANDIA [Suspect]
     Route: 048
     Dates: end: 20080825
  3. TRANDATE [Suspect]
     Route: 048
     Dates: end: 20080825
  4. DOMPERIDONE [Suspect]
     Route: 048
  5. PREVISCAN [Suspect]
     Route: 048
     Dates: end: 20080825
  6. CRESTOR [Suspect]
     Route: 048
  7. LASILIX [Suspect]
     Indication: OEDEMA PERIPHERAL
     Route: 048
  8. ALLOPURINOL [Suspect]
     Route: 048
  9. GLUCOPHAGE [Suspect]
     Route: 048
     Dates: start: 20020101, end: 20080825
  10. LOXEN [Suspect]
     Route: 048
     Dates: end: 20080825

REACTIONS (2)
  - CARDIOGENIC SHOCK [None]
  - LACTIC ACIDOSIS [None]
